FAERS Safety Report 8765651 (Version 1)
Quarter: 2012Q4

REPORT INFORMATION
  Report Type: 
  Country: FR (occurrence: FR)
  Receive Date: 20120903
  Receipt Date: 20120903
  Transmission Date: 20130627
  Serious: Yes (Other)
  Sender: FDA-Public Use
  Company Number: PHHY2012FR074754

PATIENT
  Sex: Female

DRUGS (6)
  1. ACLASTA [Suspect]
     Indication: OSTEOPOROSIS
     Route: 042
  2. ACLASTA [Suspect]
     Route: 042
  3. ACLASTA [Suspect]
     Route: 042
     Dates: start: 20120626
  4. DOLIPRANE [Concomitant]
     Indication: FIBROMYALGIA
  5. IXPRIM [Concomitant]
     Indication: FIBROMYALGIA
  6. RIVOTRIL [Concomitant]
     Indication: FIBROMYALGIA

REACTIONS (7)
  - Toxic skin eruption [Unknown]
  - Angioedema [Unknown]
  - Erythema [Unknown]
  - Pruritus [Unknown]
  - Burning sensation [Unknown]
  - Skin lesion [Unknown]
  - Purpura [Unknown]
